FAERS Safety Report 9805022 (Version 1)
Quarter: 2014Q1

REPORT INFORMATION
  Report Type: Report from Study
  Country: US (occurrence: US)
  Receive Date: 20140109
  Receipt Date: 20140109
  Transmission Date: 20141002
  Serious: Yes (Death)
  Sender: FDA-Public Use
  Company Number: US-ROCHE-1326800

PATIENT
  Age: 85 Year
  Sex: Male

DRUGS (8)
  1. AVASTIN [Suspect]
     Indication: BLADDER CANCER
     Route: 042
     Dates: start: 20110526
  2. AVASTIN [Suspect]
     Indication: BONE CANCER
  3. AVASTIN [Suspect]
     Indication: METASTASES TO LUNG
  4. GEMZAR [Concomitant]
     Route: 042
     Dates: start: 20110526
  5. DECADRON [Concomitant]
     Route: 042
  6. ALOXI [Concomitant]
     Route: 042
  7. TYLENOL [Concomitant]
     Dosage: 650 PO
     Route: 048
  8. BENADRYL (UNITED STATES) [Concomitant]
     Route: 042

REACTIONS (2)
  - Death [Fatal]
  - Off label use [Unknown]
